FAERS Safety Report 5306787-8 (Version None)
Quarter: 2007Q2

REPORT INFORMATION
  Report Type: 
  Country: None (occurrence: None)
  Receive Date: 20070423
  Receipt Date: 20070423
  Transmission Date: 20071010
  Serious: Yes (Hospitalization)
  Sender: FDA-Public Use
  Company Number: None

PATIENT
  Age: 52 Year
  Sex: Female
  Weight: 77.1115 kg

DRUGS (1)
  1. BENAZEPRIL HCL [Suspect]
     Indication: HYPERTROPHIC CARDIOMYOPATHY
     Dosage: 1 TAB DAILY PO
     Route: 048
     Dates: start: 20070417, end: 20070418

REACTIONS (12)
  - ABDOMINAL DISTENSION [None]
  - ABDOMINAL RIGIDITY [None]
  - CHEST DISCOMFORT [None]
  - COLD SWEAT [None]
  - DIARRHOEA [None]
  - DYSPNOEA [None]
  - ERYTHEMA [None]
  - FLATULENCE [None]
  - HYPERHIDROSIS [None]
  - NAUSEA [None]
  - PARAESTHESIA [None]
  - STOMACH DISCOMFORT [None]
